FAERS Safety Report 21354033 (Version 1)
Quarter: 2022Q3

REPORT INFORMATION
  Report Type: Spontaneous
  Country: MY (occurrence: MY)
  Receive Date: 20220920
  Receipt Date: 20220920
  Transmission Date: 20221027
  Serious: Yes (Death, Other)
  Sender: FDA-Public Use
  Company Number: MY-SUN PHARMACEUTICAL INDUSTRIES LTD-2022R1-354725

PATIENT
  Age: 6 Day
  Sex: Male
  Weight: 2.84 kg

DRUGS (1)
  1. PROPYLTHIOURACIL [Suspect]
     Active Substance: PROPYLTHIOURACIL
     Indication: Hyperthyroidism
     Dosage: UNK
     Route: 064

REACTIONS (3)
  - Foetal exposure during pregnancy [Fatal]
  - Anencephaly [Fatal]
  - Meningomyelocele [Fatal]
